FAERS Safety Report 6139672-2 (Version None)
Quarter: 2009Q2

REPORT INFORMATION
  Report Type: 
  Country: None (occurrence: None)
  Receive Date: 20090401
  Receipt Date: 20090324
  Transmission Date: 20091009
  Serious: Yes (Other)
  Sender: FDA-Public Use
  Company Number: NL-ASTRAZENECA-2009AC00925

PATIENT
  Age: 38 Year
  Sex: Female

DRUGS (1)
  1. NAROPIN [Suspect]
     Indication: ANAESTHESIA

REACTIONS (5)
  - ANXIETY [None]
  - DYSPHAGIA [None]
  - HYPOAESTHESIA FACIAL [None]
  - SWOLLEN TONGUE [None]
  - VISION BLURRED [None]
